FAERS Safety Report 19277766 (Version 8)
Quarter: 2022Q3

REPORT INFORMATION
  Report Type: Report from Study
  Country: FR (occurrence: FR)
  Receive Date: 20210520
  Receipt Date: 20220810
  Transmission Date: 20221026
  Serious: Yes (Other)
  Sender: FDA-Public Use
  Company Number: NVSC2021FR102146

PATIENT
  Age: 6 Week
  Sex: Male
  Weight: 4.95 kg

DRUGS (2)
  1. ZOLGENSMA [Suspect]
     Active Substance: ONASEMNOGENE ABEPARVOVEC-XIOI
     Indication: Spinal muscular atrophy
     Dosage: UNK (4,4 X 10E14 ONCE/SINGLE)
     Route: 042
     Dates: start: 20210409, end: 20210409
  2. PREDNISOLONE [Concomitant]
     Active Substance: PREDNISOLONE
     Indication: Product used for unknown indication
     Dosage: 2 MG/KG (8 MG / PRISE)
     Route: 048
     Dates: start: 20210408

REACTIONS (8)
  - Troponin T increased [Unknown]
  - Red blood cell count decreased [Unknown]
  - Zinc deficiency [Unknown]
  - Aspartate aminotransferase increased [Unknown]
  - Rash [Recovering/Resolving]
  - Vomiting [Recovered/Resolved]
  - Vomiting [Recovered/Resolved]
  - Netherton^s syndrome [Unknown]

NARRATIVE: CASE EVENT DATE: 20210401
